FAERS Safety Report 18182137 (Version 2)
Quarter: 2022Q2

REPORT INFORMATION
  Report Type: Spontaneous
  Country: US (occurrence: US)
  Receive Date: 20200821
  Receipt Date: 20220428
  Transmission Date: 20220721
  Serious: No
  Sender: FDA-Public Use
  Company Number: US-PFIZER INC-2020321173

PATIENT
  Age: 70 Year
  Sex: Female
  Weight: 80.29 kg

DRUGS (1)
  1. IBRANCE [Suspect]
     Active Substance: PALBOCICLIB
     Indication: Breast cancer stage IV
     Dosage: 100 MG, CYCLIC (21 DAYS, OFF FOR 7 DAYS)
     Route: 048

REACTIONS (5)
  - Fatigue [Not Recovered/Not Resolved]
  - Weight increased [Not Recovered/Not Resolved]
  - Condition aggravated [Not Recovered/Not Resolved]
  - Decreased activity [Unknown]
  - Dizziness [Unknown]

NARRATIVE: CASE EVENT DATE: 20190301
